FAERS Safety Report 10983497 (Version 1)
Quarter: 2015Q1

REPORT INFORMATION
  Report Type: Spontaneous
  Country: US (occurrence: None)
  Receive Date: 20150227
  Receipt Date: 20150227
  Transmission Date: 20150721
  Serious: Yes (Other)
  Sender: FDA-Public Use
  Company Number: LMI-2014-00095

PATIENT
  Age: 31 Year
  Sex: Female
  Weight: 90.72 kg

DRUGS (3)
  1. DEFINITY [Suspect]
     Active Substance: PERFLUTREN
     Indication: STRESS ECHOCARDIOGRAM
     Dosage: (2 ML DEFINITY DILUTED IN 8 ML OF PRESERVATIVE FREE NORMAL SALINE) (0.4 ML, 1 IN 1 D), IVBOL
     Route: 040
     Dates: start: 20140310, end: 20140310
  2. TYLENOL [Concomitant]
     Active Substance: ACETAMINOPHEN
  3. IRON [Concomitant]
     Active Substance: IRON

REACTIONS (11)
  - Angioedema [None]
  - Nausea [None]
  - Hypersensitivity [None]
  - Rash [None]
  - Formication [None]
  - Hypoaesthesia [None]
  - Urticaria [None]
  - Vomiting [None]
  - Hypotension [None]
  - Pruritus [None]
  - Ear discomfort [None]

NARRATIVE: CASE EVENT DATE: 20140310
